FAERS Safety Report 5762564-5 (Version None)
Quarter: 2008Q2

REPORT INFORMATION
  Report Type: 
  Country: None (occurrence: None)
  Receive Date: 20080609
  Receipt Date: 20080529
  Transmission Date: 20081010
  Serious: Yes (Hospitalization)
  Sender: FDA-Public Use
  Company Number: B0522976A

PATIENT
  Age: 73 Year
  Sex: Male
  Weight: 150 kg

DRUGS (7)
  1. AUGMENTIN '125' [Suspect]
     Dosage: 2G TWICE PER DAY
     Route: 048
     Dates: start: 20080402
  2. UNKNOWN DRUG [Concomitant]
  3. ANTIBIOTICS [Concomitant]
     Route: 065
  4. ENALAPRIL MALEATE [Concomitant]
     Route: 048
  5. SPIRONOL [Concomitant]
     Route: 065
  6. METOPROLOL TARTRATE [Concomitant]
     Route: 065
  7. ATORVASTATIN [Concomitant]
     Route: 065

REACTIONS (3)
  - DIARRHOEA [None]
  - GASTROINTESTINAL HAEMORRHAGE [None]
  - MELAENA [None]
